FAERS Safety Report 26079357 (Version 1)
Quarter: 2025Q4

REPORT INFORMATION
  Report Type: Spontaneous
  Country: US (occurrence: US)
  Receive Date: 20251123
  Receipt Date: 20251123
  Transmission Date: 20260117
  Serious: No
  Sender: GALPHARM INTERNATIONAL
  Company Number: US-PERRIGO-25US009666

PATIENT
  Age: 24 Year
  Sex: Female
  Weight: 113.38 kg

DRUGS (2)
  1. OPILL [Suspect]
     Active Substance: NORGESTREL
     Indication: Contraception
     Dosage: 0.075 MG, QD
     Route: 048
     Dates: start: 202505, end: 20250730
  2. OPILL [Suspect]
     Active Substance: NORGESTREL
     Dosage: 0.075 MG, QD
     Route: 048
     Dates: start: 20250801

REACTIONS (2)
  - Intermenstrual bleeding [Not Recovered/Not Resolved]
  - Product dose omission issue [Not Recovered/Not Resolved]

NARRATIVE: CASE EVENT DATE: 20250722
